FAERS Safety Report 7434842-5 (Version None)
Quarter: 2011Q2

REPORT INFORMATION
  Report Type: 
  Country: None (occurrence: None)
  Receive Date: 20110425
  Receipt Date: 20110418
  Transmission Date: 20111010
  Serious: Yes (Death, Hospitalization)
  Sender: FDA-Public Use
  Company Number: AU-ROCHE-660832

PATIENT
  Sex: Female
  Weight: 83.2 kg

DRUGS (5)
  1. ESCITALOPRAM OXALATE [Concomitant]
     Dates: start: 20081115
  2. TOCILIZUMAB [Suspect]
     Dosage: THE PATIENT WAS PREVIOUSLY ENROLLED IN WA17824
     Route: 042
     Dates: start: 20060914
  3. TOCILIZUMAB [Suspect]
     Indication: RHEUMATOID ARTHRITIS
     Route: 042
     Dates: start: 20070813
  4. PERINDOPRIL ARGININE [Concomitant]
     Dates: start: 20071018
  5. TOCILIZUMAB [Suspect]
     Route: 042
     Dates: start: 20090518, end: 20091015

REACTIONS (1)
  - SMALL CELL LUNG CANCER METASTATIC [None]
